FAERS Safety Report 15317933 (Version 1)
Quarter: 2018Q3

REPORT INFORMATION
  Report Type: Spontaneous
  Country: US (occurrence: US)
  Receive Date: 20180817
  Receipt Date: 20180817
  Transmission Date: 20181010
  Serious: Yes (Hospitalization)
  Sender: FDA-Public Use
  Company Number: None

PATIENT
  Age: 45 Year
  Sex: Female
  Weight: 81 kg

DRUGS (1)
  1. NP THYROID [Suspect]
     Active Substance: LEVOTHYROXINE\LIOTHYRONINE
     Indication: HYPOTHYROIDISM
     Dosage: ?          QUANTITY:2 TABLET(S);?
     Route: 048
     Dates: start: 20180607, end: 20180608

REACTIONS (8)
  - Tremor [None]
  - Headache [None]
  - Heart rate increased [None]
  - Ill-defined disorder [None]
  - Dizziness [None]
  - Eye pain [None]
  - Cold sweat [None]
  - Hyperthyroidism [None]

NARRATIVE: CASE EVENT DATE: 20180608
